FAERS Safety Report 6725700-X (Version None)
Quarter: 2010Q2

REPORT INFORMATION
  Report Type: 
  Country: None (occurrence: None)
  Receive Date: 20100514
  Receipt Date: 20100510
  Transmission Date: 20101027
  Serious: Yes (Life-Threatening, Hospitalization)
  Sender: FDA-Public Use
  Company Number: AT-JNJFOC-20100502664

PATIENT
  Age: 46 Year
  Sex: Male

DRUGS (13)
  1. HALDOL [Suspect]
     Indication: DELIRIUM
     Route: 065
  2. NEUROTOP [Suspect]
     Indication: DRUG USE FOR UNKNOWN INDICATION
     Route: 065
  3. DEXAMETHASONE [Concomitant]
     Route: 065
  4. DEXAMETHASONE [Concomitant]
     Route: 065
  5. DEXAMETHASONE [Concomitant]
     Route: 065
  6. DEXAMETHASONE [Concomitant]
     Route: 065
  7. DEXAMETHASONE [Concomitant]
     Route: 065
  8. TRAZODONE HCL [Concomitant]
     Route: 065
  9. PANTOPRAZOLE [Concomitant]
     Route: 065
  10. VITAMIN D3 [Concomitant]
     Route: 065
  11. LORAZEPAM [Concomitant]
     Route: 065
  12. DALTEPARIN SODIUM [Concomitant]
     Route: 065
  13. HEPARIN [Concomitant]
     Route: 042

REACTIONS (2)
  - BLOOD PRESSURE DECREASED [None]
  - PULMONARY EMBOLISM [None]
